FAERS Safety Report 6818103-0 (Version None)
Quarter: 2010Q3

REPORT INFORMATION
  Report Type: 
  Country: None (occurrence: None)
  Receive Date: 20100706
  Receipt Date: 20100625
  Transmission Date: 20110219
  Serious: Yes (Other)
  Sender: FDA-Public Use
  Company Number: US-BAXTER-2010BH017341

PATIENT
  Age: 46 Year
  Sex: Female

DRUGS (6)
  1. FENTANYL CITRATE [Suspect]
     Indication: CARPAL TUNNEL DECOMPRESSION
     Route: 042
  2. SERTRALINE [Suspect]
     Indication: CARPAL TUNNEL DECOMPRESSION
     Route: 065
  3. MIDAZOLAM HCL [Concomitant]
     Indication: PRODUCT USED FOR UNKNOWN INDICATION
     Route: 065
  4. PROPOFOL [Concomitant]
     Indication: PRODUCT USED FOR UNKNOWN INDICATION
     Route: 065
  5. CETIRIZINE HCL [Concomitant]
     Indication: SEASONAL ALLERGY
     Route: 065
  6. FLUMAZENIL [Concomitant]
     Indication: PRODUCT USED FOR UNKNOWN INDICATION
     Route: 065

REACTIONS (2)
  - DRUG INTERACTION [None]
  - SEROTONIN SYNDROME [None]
